FAERS Safety Report 6674622-1 (Version None)
Quarter: 2010Q1

REPORT INFORMATION
  Report Type: 
  Country: None (occurrence: None)
  Receive Date: 20100329
  Receipt Date: 20090516
  Transmission Date: 20100710
  Serious: Yes (Other)
  Sender: FDA-Public Use
  Company Number: 2009183903

PATIENT
  Sex: Female

DRUGS (2)
  1. GEODON (ZIPRASIDONE HCL) CAPSULE, HARD [Suspect]
     Indication: BIPOLAR DISORDER
     Dosage: 40 MG 2X/DAY ORAL
     Route: 048
  2. GEODON (ZIPRASIDONE HCL) CAPSULE, HARD [Suspect]
     Indication: MANIA
     Dosage: 40 MG 2X/DAY ORAL
     Route: 048

REACTIONS (2)
  - SWOLLEN TONGUE [None]
  - TORTICOLLIS [None]
